FAERS Safety Report 5752494-7 (Version None)
Quarter: 2008Q2

REPORT INFORMATION
  Report Type: 
  Country: None (occurrence: None)
  Receive Date: 20080527
  Receipt Date: 20080527
  Transmission Date: 20081010
  Serious: No
  Sender: FDA-Public Use
  Company Number: None

PATIENT
  Sex: Female

DRUGS (2)
  1. LISINOPRIL [Suspect]
     Indication: HYPERTENSION
     Dosage: 1 TABLET DAILY PO
     Route: 048
     Dates: start: 20080423, end: 20080514
  2. LISINOPRIL [Suspect]
     Indication: HYPERTENSION
     Dosage: 1 TABLET DAILY PO
     Route: 048
     Dates: start: 20080423, end: 20080514

REACTIONS (3)
  - DRUG INEFFECTIVE [None]
  - PHARMACEUTICAL PRODUCT COMPLAINT [None]
  - THERAPEUTIC RESPONSE UNEXPECTED WITH DRUG SUBSTITUTION [None]
